FAERS Safety Report 7629147-3 (Version None)
Quarter: 2011Q3

REPORT INFORMATION
  Report Type: 
  Country: None (occurrence: None)
  Receive Date: 20110722
  Receipt Date: 20110707
  Transmission Date: 20111222
  Serious: Yes (Other)
  Sender: FDA-Public Use
  Company Number: PHHY2011JP61009

PATIENT
  Sex: Male

DRUGS (4)
  1. DILTIAZEM HCL [Concomitant]
     Route: 048
  2. DOXAZOSIN MESYLATE [Concomitant]
     Route: 048
  3. TENORMIN [Concomitant]
  4. DIOVAN [Suspect]
     Route: 048

REACTIONS (5)
  - MALAISE [None]
  - BLOOD URIC ACID INCREASED [None]
  - FATIGUE [None]
  - ARRHYTHMIA [None]
  - CHEST DISCOMFORT [None]
